FAERS Safety Report 8220239-7 (Version None)
Quarter: 2012Q1

REPORT INFORMATION
  Report Type: 
  Country: None (occurrence: None)
  Receive Date: 20120315
  Receipt Date: 20120307
  Transmission Date: 20120608
  Serious: Yes (Hospitalization)
  Sender: FDA-Public Use
  Company Number: 2011SP005797

PATIENT
  Age: 30 Year
  Sex: Female
  Weight: 102.0593 kg

DRUGS (1)
  1. NUVARING [Suspect]
     Indication: CONTRACEPTION
     Dates: start: 20090204, end: 20090301

REACTIONS (12)
  - PULMONARY INFARCTION [None]
  - REFUSAL OF TREATMENT BY PATIENT [None]
  - DIZZINESS [None]
  - FATIGUE [None]
  - PULMONARY EMBOLISM [None]
  - HEADACHE [None]
  - PULMONARY HYPERTENSION [None]
  - HEPATIC STEATOSIS [None]
  - HYPERCOAGULATION [None]
  - DEEP VEIN THROMBOSIS [None]
  - BLOOD GLUCOSE INCREASED [None]
  - SLEEP APNOEA SYNDROME [None]
